FAERS Safety Report 17268059 (Version 1)
Quarter: 2020Q1

REPORT INFORMATION
  Report Type: Spontaneous
  Country: US (occurrence: US)
  Receive Date: 20191221
  Receipt Date: 20191221
  Transmission Date: 20200409
  Serious: No
  Sender: FDA-Public Use
  Company Number: None

PATIENT
  Age: 25 Year
  Sex: Male

DRUGS (1)
  1. MYCOPHENOLATE MOFETIL 500MG TABLET [Suspect]
     Active Substance: MYCOPHENOLATE MOFETIL
     Route: 058
     Dates: start: 201907

REACTIONS (1)
  - Off label use [None]

NARRATIVE: CASE EVENT DATE: 20191221
